FAERS Safety Report 25727164 (Version 1)
Quarter: 2025Q3

REPORT INFORMATION
  Report Type: Spontaneous
  Country: US (occurrence: None)
  Receive Date: 20250825
  Receipt Date: 20250825
  Transmission Date: 20251021
  Serious: Yes (Hospitalization)
  Sender: FDA-CTU
  Company Number: None

PATIENT
  Age: 73 Year
  Sex: Male

DRUGS (16)
  1. ERLEADA [Suspect]
     Active Substance: APALUTAMIDE
     Indication: Prostate cancer
     Dosage: 60 MG TWICE WEEKLY ORAL
     Route: 048
     Dates: start: 20250614, end: 20250805
  2. ENTRESTO [Suspect]
     Active Substance: SACUBITRIL\VALSARTAN
  3. EPLERENONE [Suspect]
     Active Substance: EPLERENONE
  4. ELIQUIS [Suspect]
     Active Substance: APIXABAN
  5. CARVEDILOL [Concomitant]
     Active Substance: CARVEDILOL
  6. FUROSEMIDE [Concomitant]
     Active Substance: FUROSEMIDE
  7. SERTRALINE [Concomitant]
     Active Substance: SERTRALINE HYDROCHLORIDE
  8. VITAMIN B12 [Concomitant]
     Active Substance: CYANOCOBALAMIN
  9. ZINC [Concomitant]
     Active Substance: ZINC
  10. QUERCERTIN [Concomitant]
  11. ENTRESTO [Concomitant]
     Active Substance: SACUBITRIL\VALSARTAN
  12. COENZYME Q10 [Concomitant]
     Active Substance: DIETARY SUPPLEMENT\UBIDECARENONE
  13. EPLERENONE [Concomitant]
     Active Substance: EPLERENONE
  14. METFORMIN [Concomitant]
     Active Substance: METFORMIN HYDROCHLORIDE
  15. VITAMIN C [Concomitant]
     Active Substance: ASCORBIC ACID
  16. VITAMIN D [Concomitant]
     Active Substance: VITAMIN D NOS

REACTIONS (1)
  - Ejection fraction decreased [None]

NARRATIVE: CASE EVENT DATE: 20250805
